FAERS Safety Report 24815631 (Version 1)
Quarter: 2025Q1

REPORT INFORMATION
  Report Type: Spontaneous
  Country: FR (occurrence: FR)
  Receive Date: 20250107
  Receipt Date: 20250107
  Transmission Date: 20250409
  Serious: Yes (Hospitalization)
  Sender: TEVA
  Company Number: None

PATIENT
  Age: 18 Year
  Sex: Male
  Weight: 70 kg

DRUGS (5)
  1. AZITHROMYCIN [Suspect]
     Active Substance: AZITHROMYCIN
     Indication: Lyme disease
     Route: 048
     Dates: start: 20240531, end: 20240630
  2. PLAQUENIL [Suspect]
     Active Substance: HYDROXYCHLOROQUINE SULFATE
     Indication: Lyme disease
     Route: 048
     Dates: start: 20240531, end: 20240731
  3. DAPSONE\FERROUS OXALATE [Suspect]
     Active Substance: DAPSONE\FERROUS OXALATE
     Indication: Lyme disease
     Dosage: SCORED TABLET
     Route: 048
     Dates: start: 20240715, end: 20240731
  4. TINIDAZOLE [Suspect]
     Active Substance: TINIDAZOLE
     Indication: Lyme disease
     Route: 048
     Dates: start: 20240531, end: 20240731
  5. FLUCONAZOLE [Suspect]
     Active Substance: FLUCONAZOLE
     Indication: Lyme disease
     Route: 048
     Dates: start: 20240531, end: 20240731

REACTIONS (1)
  - Drug reaction with eosinophilia and systemic symptoms [Recovering/Resolving]

NARRATIVE: CASE EVENT DATE: 20240731
